FAERS Safety Report 7300076-8 (Version None)
Quarter: 2011Q1

REPORT INFORMATION
  Report Type: 
  Country: None (occurrence: None)
  Receive Date: 20110208
  Receipt Date: 20110128
  Transmission Date: 20110831
  Serious: Yes (Hospitalization)
  Sender: FDA-Public Use
  Company Number: 2011SP003512

PATIENT
  Age: 45 Year
  Sex: Male

DRUGS (5)
  1. HYDROCOONE BITARTRATE [Concomitant]
  2. SULFAMETHAXAZOLE [Concomitant]
  3. INTRON A [Suspect]
     Indication: HEPATITIS C
     Dates: start: 20100616, end: 20101124
  4. REBETOL [Suspect]
     Indication: HEPATITIS C
     Dosage: 1200 MG; QD; PO
     Route: 048
     Dates: start: 20100616
  5. CEPHALEXIN [Concomitant]

REACTIONS (1)
  - CELLULITIS [None]
